FAERS Safety Report 26009649 (Version 1)
Quarter: 2025Q4

REPORT INFORMATION
  Report Type: Spontaneous
  Country: EG (occurrence: EG)
  Receive Date: 20251107
  Receipt Date: 20251107
  Transmission Date: 20260118
  Serious: Yes (Other)
  Sender: HIKMA
  Company Number: EG-HIKMA PHARMACEUTICALS USA INC.-EG-H14001-25-11753

PATIENT

DRUGS (4)
  1. CARBOPLATIN [Suspect]
     Active Substance: CARBOPLATIN
     Indication: Lip neoplasm
     Dosage: 430 MILLIGRAM, 3W
     Route: 065
  2. CARBOPLATIN [Suspect]
     Active Substance: CARBOPLATIN
     Dosage: 430 MILLIGRAM, 3W
     Route: 065
     Dates: start: 20250731
  3. DOCETAXEL [Suspect]
     Active Substance: DOCETAXEL
     Dosage: 130 MILLIGRAM, 3W
     Route: 065
     Dates: start: 20250731
  4. DOCETAXEL [Suspect]
     Active Substance: DOCETAXEL
     Indication: Lip neoplasm
     Dosage: 130 MILLIGRAM, 3W

REACTIONS (8)
  - Fatigue [Recovering/Resolving]
  - Bedridden [Recovered/Resolved]
  - Hypophagia [Recovered/Resolved]
  - Diarrhoea [Recovered/Resolved]
  - Dehydration [Recovered/Resolved]
  - Malaise [Recovering/Resolving]
  - Quality of life decreased [Recovering/Resolving]
  - Toxicity to various agents [Recovering/Resolving]

NARRATIVE: CASE EVENT DATE: 20250814
